FAERS Safety Report 6407624-0 (Version None)
Quarter: 2009Q4

REPORT INFORMATION
  Report Type: 
  Country: None (occurrence: None)
  Receive Date: 20091020
  Receipt Date: 20091007
  Transmission Date: 20100525
  Serious: Yes (Other)
  Sender: FDA-Public Use
  Company Number: PHHY2009AU41312

PATIENT
  Sex: Female
  Weight: 75 kg

DRUGS (4)
  1. ACLASTA [Suspect]
     Indication: OSTEOPOROSIS
     Dosage: 5 MG ONCE
     Route: 042
     Dates: start: 20090720
  2. METOPROLOL [Concomitant]
     Indication: TREMOR
     Dosage: 75 MG, QD
     Route: 048
  3. CALTRATE [Concomitant]
     Indication: OSTEOPOROSIS
     Dosage: 600 MG, UNK
     Route: 048
  4. OSTEOVIT [Concomitant]
     Indication: VITAMIN D DEFICIENCY
     Route: 048

REACTIONS (2)
  - CONVULSION [None]
  - SYNCOPE [None]
